FAERS Safety Report 5958132-2 (Version None)
Quarter: 2008Q4

REPORT INFORMATION
  Report Type: 
  Country: None (occurrence: None)
  Receive Date: 20081117
  Receipt Date: 20081117
  Transmission Date: 20090506
  Serious: Yes (Life-Threatening, Hospitalization)
  Sender: FDA-Public Use
  Company Number: None

PATIENT
  Sex: Male
  Weight: 90.7194 kg

DRUGS (1)
  1. HEPARIN [Suspect]
     Indication: PULMONARY EMBOLISM
     Dosage: 25,000 UNITS 1300 UNITS/HR IV DRIP
     Route: 041
     Dates: start: 20081003, end: 20081006

REACTIONS (1)
  - HEPARIN-INDUCED THROMBOCYTOPENIA [None]
